FAERS Safety Report 10014680 (Version 2)
Quarter: 2014Q1

REPORT INFORMATION
  Report Type: Spontaneous
  Country: US (occurrence: US)
  Receive Date: 20140317
  Receipt Date: 20140317
  Transmission Date: 20141002
  Serious: Yes (Hospitalization, Other)
  Sender: FDA-Public Use
  Company Number: US-BEH-2013037691

PATIENT
  Sex: Female

DRUGS (2)
  1. HIZENTRA [Suspect]
     Dosage: TAKING FOR ABOUT ONE YEAR;DIVIDED DOSE OF 10 AND 8 GM (18 GM TOTAL) WEEKLY
     Route: 058
  2. HIZENTRA [Suspect]
     Indication: PRIMARY IMMUNODEFICIENCY SYNDROME
     Route: 042

REACTIONS (8)
  - Meningitis aseptic [Unknown]
  - Meningitis aseptic [Recovered/Resolved]
  - Malaise [Not Recovered/Not Resolved]
  - Viral infection [Unknown]
  - Infection [Unknown]
  - Malaise [Recovered/Resolved]
  - Drug dose omission [Unknown]
  - Incorrect route of drug administration [Recovered/Resolved]
